FAERS Safety Report 6247737-X (Version None)
Quarter: 2009Q2

REPORT INFORMATION
  Report Type: 
  Country: None (occurrence: None)
  Receive Date: 20090626
  Receipt Date: 20090622
  Transmission Date: 20091009
  Serious: Yes (Death, Hospitalization)
  Sender: FDA-Public Use
  Company Number: PHHY2009BR24872

PATIENT
  Sex: Female

DRUGS (4)
  1. EXELON [Suspect]
     Indication: DEMENTIA ALZHEIMER'S TYPE
     Dosage: A SMALL AMOUNT , TWICE/DAY
     Route: 048
     Dates: start: 20050101, end: 20090105
  2. PROLOPA [Concomitant]
     Indication: PARKINSON'S DISEASE
     Dosage: 250 MG, 1/2 TABLET MORNING, 1/2 TABLET LUNCH, 1/2 TABLET AFTERNOON AND 1 TABLET AT NIGHT
     Route: 048
     Dates: start: 20050101, end: 20090105
  3. TRIVASTAL [Concomitant]
     Indication: PARKINSON'S DISEASE
     Dosage: ONCE/DAY
     Route: 048
     Dates: start: 20050101, end: 20090105
  4. VITAMINS [Concomitant]
     Dosage: UNK
     Route: 048
     Dates: end: 20090105

REACTIONS (5)
  - DEMENTIA ALZHEIMER'S TYPE [None]
  - NERVOUS SYSTEM DISORDER [None]
  - PARKINSON'S DISEASE [None]
  - PNEUMONIA [None]
  - RESPIRATORY FAILURE [None]
